FAERS Safety Report 16299909 (Version 1)
Quarter: 2019Q2

REPORT INFORMATION
  Report Type: Spontaneous
  Country: US (occurrence: US)
  Receive Date: 20190510
  Receipt Date: 20190510
  Transmission Date: 20190711
  Serious: Yes (Death, Other)
  Sender: FDA-Public Use
  Company Number: US-BRISTOL-MYERS SQUIBB COMPANY-BMS-2019-045610

PATIENT
  Sex: Male

DRUGS (2)
  1. SPRYCEL [Suspect]
     Active Substance: DASATINIB
     Indication: NEUTROPENIA
     Route: 065
  2. SPRYCEL [Suspect]
     Active Substance: DASATINIB
     Indication: SPLENOMEGALY
     Dosage: 40 MILLIGRAM, QD
     Route: 048
     Dates: start: 201202

REACTIONS (2)
  - Death [Fatal]
  - Product use in unapproved indication [Unknown]
